FAERS Safety Report 24108725 (Version 1)
Quarter: 2024Q3

REPORT INFORMATION
  Report Type: Spontaneous
  Country: IN (occurrence: IN)
  Receive Date: 20240718
  Receipt Date: 20240718
  Transmission Date: 20241017
  Serious: Yes (Other)
  Sender: AMGEN
  Company Number: IN-AMGEN-INDSP2024138055

PATIENT
  Age: 52 Year
  Sex: Male

DRUGS (1)
  1. XGEVA [Suspect]
     Active Substance: DENOSUMAB
     Indication: Bone giant cell tumour
     Dosage: 120 MILLIGRAM ON DAYS 0, 8, 15, 30, AND 60
     Route: 058

REACTIONS (2)
  - Periprosthetic fracture [Unknown]
  - Road traffic accident [Unknown]
